FAERS Safety Report 4600157-3 (Version None)
Quarter: 2005Q1

REPORT INFORMATION
  Report Type: 
  Country: None (occurrence: None)
  Receive Date: 20050303
  Receipt Date: 20041216
  Transmission Date: 20050727
  Serious: Yes (Death)
  Sender: FDA-Public Use
  Company Number: D01200405516

PATIENT
  Age: 85 Year
  Sex: Female
  Weight: 84 kg

DRUGS (4)
  1. WARFARIN - TABLET - UNIT DOSE : UNKNOWN [Suspect]
     Indication: THROMBOSIS PROPHYLAXIS
     Dosage: ORAL
     Route: 048
     Dates: start: 20041101, end: 20041213
  2. FUROSEMIDE [Concomitant]
  3. SIMVASTATIN [Concomitant]
  4. METFORMIN HCL [Concomitant]

REACTIONS (3)
  - FALL [None]
  - HAEMORRHAGE [None]
  - INJURY [None]
